FAERS Safety Report 24316247 (Version 1)
Quarter: 2024Q3

REPORT INFORMATION
  Report Type: Spontaneous
  Country: US (occurrence: US)
  Receive Date: 20240913
  Receipt Date: 20240913
  Transmission Date: 20241017
  Serious: No
  Sender: BAYER
  Company Number: US-BAYER-2024A130478

PATIENT

DRUGS (3)
  1. ALEVE [Suspect]
     Active Substance: NAPROXEN SODIUM
     Indication: Toothache
  2. ALEVE [Suspect]
     Active Substance: NAPROXEN SODIUM
     Indication: Headache
  3. ALEVE [Suspect]
     Active Substance: NAPROXEN SODIUM
     Indication: Arthritis

REACTIONS (1)
  - Drug ineffective for unapproved indication [Unknown]
